FAERS Safety Report 17821220 (Version 6)
Quarter: 2021Q1

REPORT INFORMATION
  Report Type: Spontaneous
  Country: JP (occurrence: JP)
  Receive Date: 20200525
  Receipt Date: 20210104
  Transmission Date: 20210419
  Serious: Yes (Death, Hospitalization, Other)
  Sender: FDA-Public Use
  Company Number: JP-009507513-2005JPN001278J

PATIENT
  Age: 70 Year
  Sex: Male
  Weight: 61 kg

DRUGS (8)
  1. KEYTRUDA [Suspect]
     Active Substance: PEMBROLIZUMAB
     Indication: LUNG SQUAMOUS CELL CARCINOMA STAGE IV
     Dosage: 200 MILLIGRAM, Q3W
     Route: 041
     Dates: start: 20200227, end: 20200227
  2. BACTRAMIN [Suspect]
     Active Substance: SULFAMETHOXAZOLE\TRIMETHOPRIM
     Indication: PROPHYLAXIS
     Dosage: 1 DOSAGE FORM/DAY
     Route: 048
     Dates: start: 20200326, end: 20200505
  3. MEDICON [Suspect]
     Active Substance: DEXTROMETHORPHAN HYDROBROMIDE
     Indication: COUGH
     Dosage: 90 MILLIGRAM/DAY
     Route: 048
     Dates: start: 20200227, end: 20200505
  4. TAKEPRON [Concomitant]
     Active Substance: LANSOPRAZOLE
     Dosage: 15 MILLIGRAM/DAY
     Route: 048
     Dates: start: 20200130, end: 20200505
  5. CARBOPLATIN. [Concomitant]
     Active Substance: CARBOPLATIN
     Indication: LUNG SQUAMOUS CELL CARCINOMA STAGE IV
     Dosage: 430 MILLIGRAM, Q3W
     Route: 041
     Dates: start: 20200227, end: 20200227
  6. PACLITAXEL ALBUMIN [Concomitant]
     Active Substance: PACLITAXEL
     Indication: LUNG SQUAMOUS CELL CARCINOMA STAGE IV
     Dosage: 160 MILLIGRAM, Q3W
     Route: 041
     Dates: start: 20200227, end: 20200227
  7. PLAVIX [Concomitant]
     Active Substance: CLOPIDOGREL BISULFATE
     Dosage: 75 MILLIGRAM/DAY
     Route: 048
     Dates: start: 20200130, end: 20200505
  8. FEBURIC [Concomitant]
     Active Substance: FEBUXOSTAT
     Dosage: 10 MILLIGRAM/DAY
     Route: 048
     Dates: start: 20200130, end: 20200505

REACTIONS (8)
  - Hepatic function abnormal [Recovering/Resolving]
  - Malignant neoplasm progression [Unknown]
  - Pneumonia [Recovered/Resolved]
  - Oesophagitis haemorrhagic [Fatal]
  - Amylase increased [Not Recovered/Not Resolved]
  - Stevens-Johnson syndrome [Fatal]
  - Interstitial lung disease [Recovering/Resolving]
  - Renal disorder [Unknown]

NARRATIVE: CASE EVENT DATE: 2020
